FAERS Safety Report 7757633-4 (Version None)
Quarter: 2011Q3

REPORT INFORMATION
  Report Type: 
  Country: None (occurrence: None)
  Receive Date: 20110916
  Receipt Date: 20110909
  Transmission Date: 20111222
  Serious: Yes (Hospitalization)
  Sender: FDA-Public Use
  Company Number: PHHY2011US48798

PATIENT
  Age: 28 Year
  Sex: Male

DRUGS (5)
  1. TOBI [Suspect]
     Dosage: 300 MG, BID (28 DAYS ON AND 28 DAYS OFF)
     Dates: start: 20100727
  2. TOBI [Suspect]
     Dosage: 300 MG, BID, 28 DAYS ON 28 DAYS OFF
     Dates: start: 20110330, end: 20110524
  3. SINUS RINSE [Concomitant]
  4. TOBI [Suspect]
     Dosage: 300 MG, BID (28 DAYS ON AND 28 DAYS OFF)
  5. PULMOZYME [Concomitant]
     Dosage: UNK UKN, UNK

REACTIONS (2)
  - BRAIN ABSCESS [None]
  - UPPER RESPIRATORY TRACT INFECTION [None]
